FAERS Safety Report 18424883 (Version 2)
Quarter: 2025Q1

REPORT INFORMATION
  Report Type: Spontaneous
  Country: DE (occurrence: DE)
  Receive Date: 20201026
  Receipt Date: 20250304
  Transmission Date: 20250408
  Serious: Yes (Death)
  Sender: TAKEDA
  Company Number: DE-BEH-2020123198

PATIENT

DRUGS (1)
  1. ALBUMIN HUMAN [Suspect]
     Active Substance: ALBUMIN HUMAN
     Indication: Blood volume expansion

REACTIONS (3)
  - Drug ineffective [Unknown]
  - Hepatic failure [Fatal]
  - Pneumonia [Fatal]
